FAERS Safety Report 6636057-7 (Version None)
Quarter: 2010Q1

REPORT INFORMATION
  Report Type: 
  Country: None (occurrence: None)
  Receive Date: 20100316
  Receipt Date: 20100310
  Transmission Date: 20100710
  Serious: Yes (Death)
  Sender: FDA-Public Use
  Company Number: PHEH2009US15971

PATIENT
  Sex: Female
  Weight: 101 kg

DRUGS (2)
  1. EXJADE [Suspect]
     Indication: ANAEMIA
     Dosage: 1000 MG, QD
     Route: 048
     Dates: start: 20091001
  2. EXJADE [Suspect]
     Indication: IRON OVERLOAD

REACTIONS (5)
  - BLOOD CREATININE INCREASED [None]
  - BLOOD UREA INCREASED [None]
  - DEATH [None]
  - DIARRHOEA [None]
  - HEADACHE [None]
